FAERS Safety Report 25123490 (Version 1)
Quarter: 2025Q1

REPORT INFORMATION
  Report Type: Report from Study
  Country: IE (occurrence: IE)
  Receive Date: 20250326
  Receipt Date: 20250326
  Transmission Date: 20250409
  Serious: Yes (Other)
  Sender: TAKEDA
  Company Number: IE-TAKEDA-2025TUS018821

PATIENT
  Age: 60 Year
  Sex: Female

DRUGS (4)
  1. VEDOLIZUMAB [Suspect]
     Active Substance: VEDOLIZUMAB
     Indication: Product used for unknown indication
  2. VEDOLIZUMAB [Suspect]
     Active Substance: VEDOLIZUMAB
  3. VEDOLIZUMAB [Suspect]
     Active Substance: VEDOLIZUMAB
  4. VEDOLIZUMAB [Suspect]
     Active Substance: VEDOLIZUMAB

REACTIONS (4)
  - Rectal haemorrhage [Recovered/Resolved]
  - Vomiting [Recovering/Resolving]
  - Nausea [Recovering/Resolving]
  - Animal bite [Recovered/Resolved]

NARRATIVE: CASE EVENT DATE: 20250201
